FAERS Safety Report 19959709 (Version 1)
Quarter: 2021Q4

REPORT INFORMATION
  Report Type: Spontaneous
  Country: US (occurrence: US)
  Receive Date: 20211015
  Receipt Date: 20211015
  Transmission Date: 20220303
  Serious: Yes (Death)
  Sender: FDA-Public Use
  Company Number: None

PATIENT
  Age: 55 Year
  Sex: Female
  Weight: 139.9 kg

DRUGS (1)
  1. REGEN-COV [Suspect]
     Active Substance: CASIRIVIMAB\IMDEVIMAB

REACTIONS (6)
  - Cardiac arrest [None]
  - Respiratory distress [None]
  - Ventricular tachycardia [None]
  - Ventricular fibrillation [None]
  - Catheter site haemorrhage [None]
  - Mydriasis [None]

NARRATIVE: CASE EVENT DATE: 20211004
